FAERS Safety Report 16478407 (Version 3)
Quarter: 2019Q3

REPORT INFORMATION
  Report Type: Spontaneous
  Country: DE (occurrence: DE)
  Receive Date: 20190626
  Receipt Date: 20190722
  Transmission Date: 20191004
  Serious: Yes (Life-Threatening, Hospitalization)
  Sender: FDA-Public Use
  Company Number: DE-KYOWAKIRIN-2019BKK009766

PATIENT

DRUGS (5)
  1. POTELIGEO [Suspect]
     Active Substance: MOGAMULIZUMAB-KPKC
     Indication: CUTANEOUS T-CELL LYMPHOMA STAGE II
     Dosage: UNKNOWN, 28-DAY CYCLE: DAY 1, 8, 15 AND 22
     Route: 042
     Dates: start: 20190520, end: 20190603
  2. POTELIGEO [Suspect]
     Active Substance: MOGAMULIZUMAB-KPKC
     Dosage: UNKNOWN, 28-DAY CYCLE: DAY 1, 8, 15 AND 22
     Route: 042
     Dates: start: 20190513, end: 20190513
  3. PARACETAMOL [Concomitant]
     Active Substance: ACETAMINOPHEN
     Indication: PREMEDICATION
     Dosage: 500 MG
     Route: 065
     Dates: start: 20190513, end: 20190603
  4. FENISTIL [Concomitant]
     Active Substance: DIMETHINDENE
     Indication: PREMEDICATION
     Dosage: 1 AMPOULE
     Route: 065
     Dates: start: 20190513, end: 20190603
  5. DEXAMETASON [DEXAMETHASONE] [Concomitant]
     Active Substance: DEXAMETHASONE
     Indication: PREMEDICATION
     Dosage: 20 MG
     Route: 065
     Dates: start: 20190513, end: 20190603

REACTIONS (9)
  - Inappropriate schedule of product administration [Unknown]
  - Interleukin level increased [Not Recovered/Not Resolved]
  - General physical health deterioration [Not Recovered/Not Resolved]
  - C-reactive protein increased [Not Recovered/Not Resolved]
  - Blister [Not Recovered/Not Resolved]
  - Herpes simplex [Not Recovered/Not Resolved]
  - Skin plaque [Not Recovered/Not Resolved]
  - Pyrexia [Not Recovered/Not Resolved]
  - Skin erosion [Not Recovered/Not Resolved]

NARRATIVE: CASE EVENT DATE: 2019
